FAERS Safety Report 21961431 (Version 2)
Quarter: 2023Q1

REPORT INFORMATION
  Report Type: Spontaneous
  Country: IN (occurrence: None)
  Receive Date: 20230207
  Receipt Date: 20230214
  Transmission Date: 20230418
  Serious: Yes (Hospitalization, Other)
  Sender: FDA-Public Use
  Company Number: IN-Unichem Pharmaceuticals (USA) Inc-UCM202301-000139

PATIENT
  Age: 65 Year
  Sex: Female

DRUGS (1)
  1. BACLOFEN [Suspect]
     Active Substance: BACLOFEN
     Indication: Hiccups
     Dosage: TAKEN FIVE TABLETS BY THAT TIME
     Route: 048

REACTIONS (5)
  - Frontotemporal dementia [Recovering/Resolving]
  - Quadriparesis [Recovering/Resolving]
  - Neurotoxicity [Recovering/Resolving]
  - Depressed level of consciousness [Recovered/Resolved]
  - Product use in unapproved indication [Unknown]
